FAERS Safety Report 13374081 (Version 2)
Quarter: 2017Q3

REPORT INFORMATION
  Report Type: Spontaneous
  Country: GB (occurrence: GB)
  Receive Date: 20170327
  Receipt Date: 20170811
  Transmission Date: 20171127
  Serious: Yes (Death, Other)
  Sender: FDA-Public Use
  Company Number: GB-NOVOPROD-536848

PATIENT
  Age: 61 Year
  Sex: Male

DRUGS (1)
  1. NOVORAPID [Suspect]
     Active Substance: INSULIN ASPART
     Indication: DIABETES MELLITUS
     Dosage: 34 U, QD
     Route: 058
     Dates: start: 20160309

REACTIONS (2)
  - Diabetic ketoacidosis [Fatal]
  - Product leakage [Unknown]

NARRATIVE: CASE EVENT DATE: 20170226
